FAERS Safety Report 7920413-0 (Version None)
Quarter: 2011Q4

REPORT INFORMATION
  Report Type: 
  Country: None (occurrence: None)
  Receive Date: 20111117
  Receipt Date: 20111104
  Transmission Date: 20120403
  Serious: Yes (Other)
  Sender: FDA-Public Use
  Company Number: PHEH2011US008719

PATIENT
  Sex: Female

DRUGS (5)
  1. GILENYA [Suspect]
     Dosage: 0.5 MG, QD
     Route: 048
  2. IBUPROFEN (ADVIL) [Concomitant]
     Dosage: UNK UKN, PRN
  3. ACETAMINOPHEN AND HYDROCODONE BITARTRATE [Concomitant]
     Dosage: 5/500 MG, DAILY
  4. CLONAZEPAM [Concomitant]
     Dosage: 1 MG, PRN
  5. LYRICA [Concomitant]
     Dosage: 75 MG, TID

REACTIONS (11)
  - NAUSEA [None]
  - FATIGUE [None]
  - HEADACHE [None]
  - JAUNDICE [None]
  - CHEST PAIN [None]
  - DYSPNOEA [None]
  - BACK PAIN [None]
  - URINE COLOUR ABNORMAL [None]
  - VOMITING [None]
  - FLANK PAIN [None]
  - ABDOMINAL PAIN UPPER [None]
